FAERS Safety Report 16409711 (Version 1)
Quarter: 2019Q2

REPORT INFORMATION
  Report Type: Spontaneous
  Country: IT (occurrence: IT)
  Receive Date: 20190610
  Receipt Date: 20190610
  Transmission Date: 20190711
  Serious: Yes (Hospitalization, Other)
  Sender: FDA-Public Use
  Company Number: IT-MYLANLABS-2019M1054074

PATIENT
  Age: 86 Year
  Sex: Female

DRUGS (9)
  1. FONDAPARINUX [Suspect]
     Active Substance: FONDAPARINUX
     Indication: THROMBOSIS PROPHYLAXIS
     Route: 058
  2. PLAVIX [Suspect]
     Active Substance: CLOPIDOGREL BISULFATE
     Indication: THROMBOSIS PROPHYLAXIS
     Dosage: 75 MILLIGRAM, QD
     Route: 048
     Dates: start: 20180101, end: 20180713
  3. TRANSTEC [Concomitant]
     Active Substance: BUPRENORPHINE
     Dosage: UNK
  4. TORVAST [Concomitant]
     Active Substance: ATORVASTATIN
     Dosage: UNK
  5. SUCRALFIN [Concomitant]
     Dosage: UNK
  6. DOBETIN                            /00056201/ [Concomitant]
     Active Substance: CYANOCOBALAMIN
     Dosage: UNK
  7. CATAPRESAN                         /00171101/ [Concomitant]
     Active Substance: CLONIDINE
     Dosage: UNK
  8. FOLINA                             /00024201/ [Concomitant]
     Active Substance: FOLIC ACID
  9. PANTORC [Concomitant]
     Active Substance: PANTOPRAZOLE SODIUM

REACTIONS (3)
  - Rectal haemorrhage [Unknown]
  - Intestinal haemorrhage [Unknown]
  - Incorrect dose administered [Unknown]

NARRATIVE: CASE EVENT DATE: 20180714
